FAERS Safety Report 5193425-0 (Version None)
Quarter: 2006Q4

REPORT INFORMATION
  Report Type: 
  Country: None (occurrence: None)
  Receive Date: 20061228
  Receipt Date: 20060908
  Transmission Date: 20070319
  Serious: No
  Sender: FDA-Public Use
  Company Number: US-GLAXOSMITHKLINE-A0619622A

PATIENT

DRUGS (1)
  1. TRIZIVIR [Suspect]

REACTIONS (2)
  - BLOOD GLUCOSE INCREASED [None]
  - LIPIDS INCREASED [None]
